FAERS Safety Report 13995505 (Version 1)
Quarter: 2017Q3

REPORT INFORMATION
  Report Type: Spontaneous
  Country: US (occurrence: US)
  Receive Date: 20170921
  Receipt Date: 20170921
  Transmission Date: 20171128
  Serious: Yes (Hospitalization, Other)
  Sender: FDA-Public Use
  Company Number: US-AUROBINDO-AUR-APL-2017-40492

PATIENT
  Age: 65 Year
  Sex: Female

DRUGS (1)
  1. RISPERIDONE. [Suspect]
     Active Substance: RISPERIDONE
     Indication: PRODUCT USED FOR UNKNOWN INDICATION
     Dosage: LONG-ACTING INJECTION WITH MICROSPHERES
     Route: 048

REACTIONS (8)
  - Fatigue [Unknown]
  - Nausea [Unknown]
  - Disorientation [Unknown]
  - Pupillary reflex impaired [Unknown]
  - Miosis [Unknown]
  - Dizziness [Unknown]
  - Asthenia [Unknown]
  - Incorrect route of drug administration [Unknown]
